FAERS Safety Report 4991591-0 (Version None)
Quarter: 2006Q2

REPORT INFORMATION
  Report Type: 
  Country: None (occurrence: None)
  Receive Date: 20060502
  Receipt Date: 20060419
  Transmission Date: 20061013
  Serious: Yes (Other)
  Sender: FDA-Public Use
  Company Number: HQWYE888320APR06

PATIENT
  Age: 30 Year
  Sex: Female
  Weight: 54.48 kg

DRUGS (10)
  1. EFFEXOR XR [Suspect]
     Indication: DEPRESSION
     Dosage: 150 MG 1X PER 1 DAY, ORAL; SEE IMAGE
     Route: 048
     Dates: start: 20060101, end: 20060323
  2. EFFEXOR XR [Suspect]
     Indication: NEURALGIA
     Dosage: 150 MG 1X PER 1 DAY, ORAL; SEE IMAGE
     Route: 048
     Dates: start: 20060101, end: 20060323
  3. EFFEXOR XR [Suspect]
     Indication: DEPRESSION
     Dosage: 150 MG 1X PER 1 DAY, ORAL; SEE IMAGE
     Route: 048
     Dates: start: 20060324, end: 20060409
  4. EFFEXOR XR [Suspect]
     Indication: NEURALGIA
     Dosage: 150 MG 1X PER 1 DAY, ORAL; SEE IMAGE
     Route: 048
     Dates: start: 20060324, end: 20060409
  5. EFFEXOR XR [Suspect]
     Indication: DEPRESSION
     Dosage: 150 MG 1X PER 1 DAY, ORAL; SEE IMAGE
     Route: 048
     Dates: start: 20060410, end: 20060416
  6. EFFEXOR XR [Suspect]
     Indication: NEURALGIA
     Dosage: 150 MG 1X PER 1 DAY, ORAL; SEE IMAGE
     Route: 048
     Dates: start: 20060410, end: 20060416
  7. CYMBALTA [Suspect]
     Indication: DEPRESSION
     Dosage: 10 MG 1X PER 1 DAY; SEE IMAGE
     Dates: start: 20060324, end: 20060409
  8. CYMBALTA [Suspect]
     Indication: NEURALGIA
     Dosage: 10 MG 1X PER 1 DAY; SEE IMAGE
     Dates: start: 20060324, end: 20060409
  9. CYMBALTA [Suspect]
     Indication: DEPRESSION
     Dosage: 10 MG 1X PER 1 DAY; SEE IMAGE
     Dates: start: 20060410
  10. CYMBALTA [Suspect]
     Indication: NEURALGIA
     Dosage: 10 MG 1X PER 1 DAY; SEE IMAGE
     Dates: start: 20060410

REACTIONS (5)
  - CONSTIPATION [None]
  - DRUG INEFFECTIVE [None]
  - DRUG INTERACTION [None]
  - DRUG WITHDRAWAL SYNDROME [None]
  - SEROTONIN SYNDROME [None]
